FAERS Safety Report 6028153-2 (Version None)
Quarter: 2008Q4

REPORT INFORMATION
  Report Type: 
  Country: None (occurrence: None)
  Receive Date: 20081231
  Receipt Date: 20081231
  Transmission Date: 20090506
  Serious: Yes (Hospitalization)
  Sender: FDA-Public Use
  Company Number: None

PATIENT
  Sex: Female
  Weight: 94.7 kg

DRUGS (9)
  1. CISPLATIN [Suspect]
     Dosage: 88 MG
  2. DOXORUBICIN HYDROCHLORIDE [Suspect]
     Dosage: 98 MG
  3. TAXOL [Suspect]
     Dosage: 118 MG
  4. AVALIDE [Concomitant]
  5. CALCIUM [Concomitant]
  6. IBUPROFEN [Concomitant]
  7. LOVASTIN [Concomitant]
  8. MULTI-VITAMIN [Concomitant]
  9. PERCOCET [Concomitant]

REACTIONS (10)
  - ANAEMIA [None]
  - BLOOD ALBUMIN DECREASED [None]
  - CLOSTRIDIAL INFECTION [None]
  - COUGH [None]
  - FEBRILE NEUTROPENIA [None]
  - HYPERTENSION [None]
  - HYPOMAGNESAEMIA [None]
  - HYPOTENSION [None]
  - PAIN [None]
  - TACHYCARDIA [None]
